APPROVED DRUG PRODUCT: PEMETREXED DISODIUM
Active Ingredient: PEMETREXED DISODIUM
Strength: EQ 500MG BASE/VIAL
Dosage Form/Route: POWDER;INTRAVENOUS
Application: A203628 | Product #001
Applicant: PHARMOBEDIENT CONSULTING LLC
Approved: Mar 10, 2023 | RLD: No | RS: No | Type: DISCN